FAERS Safety Report 21195433 (Version 9)
Quarter: 2023Q1

REPORT INFORMATION
  Report Type: Report from Study
  Country: US (occurrence: US)
  Receive Date: 20220810
  Receipt Date: 20230215
  Transmission Date: 20230418
  Serious: No
  Sender: FDA-Public Use
  Company Number: US-NOVARTISTESTPH-NVSC2022US180737

PATIENT
  Age: 29 Year
  Sex: Female

DRUGS (1)
  1. COSENTYX [Suspect]
     Active Substance: SECUKINUMAB
     Indication: Psoriatic arthropathy
     Dosage: 300 MG, QW (QW FOR 5 WEEKS AND Q4W)
     Route: 058
     Dates: start: 20220802

REACTIONS (11)
  - Arthralgia [Unknown]
  - Pain in extremity [Unknown]
  - Fatigue [Recovered/Resolved]
  - Sinus congestion [Unknown]
  - Paranasal sinus discomfort [Unknown]
  - Pharyngeal paraesthesia [Unknown]
  - Injection site bruising [Unknown]
  - Injection site urticaria [Unknown]
  - Injection site mass [Unknown]
  - Injection site erythema [Unknown]
  - Sinusitis [Unknown]

NARRATIVE: CASE EVENT DATE: 20220803
